FAERS Safety Report 18617793 (Version 1)
Quarter: 2020Q4

REPORT INFORMATION
  Report Type: Spontaneous
  Country: FR (occurrence: FR)
  Receive Date: 20201215
  Receipt Date: 20201215
  Transmission Date: 20210114
  Serious: Yes (Other)
  Sender: FDA-Public Use
  Company Number: FR-TEVA-2020-FR-1857532

PATIENT
  Age: 44 Year
  Sex: Male
  Weight: 75 kg

DRUGS (11)
  1. NEFOPAM (CHLORHYDRATE DE) [Concomitant]
     Active Substance: NEFOPAM HYDROCHLORIDE
     Dosage: 20 MG
  2. GAVISCON [Concomitant]
     Active Substance: ALUMINUM HYDROXIDE\MAGNESIUM CARBONATE
     Dosage: 3 DOSAGE FORMS
  3. ENOXAPARINE SODIQUE ((MAMMIFERE/PORC/MUQUEUSE INTESTINALE)) [Concomitant]
     Active Substance: ENOXAPARIN SODIUM
     Dosage: 4000 IU
  4. CEFOXITIN [Suspect]
     Active Substance: CEFOXITIN SODIUM
     Indication: INFECTION
     Dosage: 2 GRAM
     Route: 058
     Dates: start: 20200911, end: 20200914
  5. METHYLPREDNISOLONE. [Concomitant]
     Active Substance: METHYLPREDNISOLONE
     Dosage: 50 MG
     Dates: start: 20200907
  6. ZOPICLONE [Concomitant]
     Active Substance: ZOPICLONE
     Dosage: 3.75 MG
     Dates: start: 20200909
  7. PANTOPRAZOLE [Concomitant]
     Active Substance: PANTOPRAZOLE
     Dosage: 20 MG
     Dates: start: 20200909
  8. MORPHINE  (SULFATE DE) [Concomitant]
     Dosage: 60 MG/KG
     Dates: start: 20200909
  9. ONDANSETRON [Concomitant]
     Active Substance: ONDANSETRON
     Dosage: 12 MG
  10. VANCOMYCINE [Suspect]
     Active Substance: VANCOMYCIN
     Indication: INFECTION
     Dosage: 1 GRAM
     Route: 065
     Dates: start: 20200911, end: 20200912
  11. LINEZOLIDE [Suspect]
     Active Substance: LINEZOLID
     Indication: INFECTION
     Dosage: 600 MG
     Route: 048
     Dates: start: 20200913, end: 20200914

REACTIONS (1)
  - Hepatocellular injury [Recovered/Resolved]

NARRATIVE: CASE EVENT DATE: 20200914
